FAERS Safety Report 11294342 (Version 1)
Quarter: 2015Q3

REPORT INFORMATION
  Report Type: Spontaneous
  Country: US (occurrence: US)
  Receive Date: 20150722
  Receipt Date: 20150722
  Transmission Date: 20151125
  Serious: No
  Sender: FDA-Public Use
  Company Number: US-ELI_LILLY_AND_COMPANY-US200805004874

PATIENT
  Age: 74 Year
  Sex: Female

DRUGS (2)
  1. FORTEO [Concomitant]
     Active Substance: TERIPARATIDE
  2. EVISTA [Suspect]
     Active Substance: RALOXIFENE HYDROCHLORIDE
     Dosage: UNK, UNK
     Dates: start: 20031029, end: 20071012

REACTIONS (2)
  - Drug ineffective [Unknown]
  - Spinal fracture [Unknown]

NARRATIVE: CASE EVENT DATE: 20070808
